FAERS Safety Report 8836309 (Version 1)
Quarter: 2012Q4

REPORT INFORMATION
  Report Type: Report from Study
  Country: DK (occurrence: DK)
  Receive Date: 20121011
  Receipt Date: 20121011
  Transmission Date: 20130627
  Serious: Yes (Hospitalization)
  Sender: FDA-Public Use
  Company Number: PHHO2012DK014569

PATIENT
  Age: 67 Year
  Sex: Male
  Weight: 50 kg

DRUGS (5)
  1. ACETYLSALICYLIC ACID [Suspect]
     Indication: MYOCARDIAL ISCHAEMIA
     Dosage: 75 mg, UNK
     Route: 048
     Dates: start: 20101119
  2. BLINDED ALISKIREN [Suspect]
     Indication: CARDIAC FAILURE
     Dosage: Code not broken
     Route: 048
     Dates: start: 20120731, end: 20120816
  3. BLINDED ENALAPRIL [Suspect]
     Indication: CARDIAC FAILURE
     Dosage: Code not broken
     Route: 048
     Dates: start: 20120731, end: 20120816
  4. BLINDED NO TREATMENT RECEIVED [Suspect]
     Indication: CARDIAC FAILURE
     Dosage: Code not broken
     Route: 048
     Dates: start: 20120731, end: 20120816
  5. PRADAXA [Suspect]
     Indication: CEREBROVASCULAR ACCIDENT
     Dosage: 110 mg, BID
     Route: 048
     Dates: start: 20120806, end: 20120928

REACTIONS (1)
  - Rectal haemorrhage [Recovered/Resolved]
